FAERS Safety Report 7424539-X (Version None)
Quarter: 2011Q2

REPORT INFORMATION
  Report Type: 
  Country: None (occurrence: None)
  Receive Date: 20110419
  Receipt Date: 20110414
  Transmission Date: 20111010
  Serious: Yes (Hospitalization)
  Sender: FDA-Public Use
  Company Number: MX-CEPHALON-2011001341

PATIENT
  Sex: Male
  Weight: 38 kg

DRUGS (3)
  1. ALLOPURINOL [Concomitant]
     Dates: start: 20110303, end: 20110316
  2. TREANDA [Suspect]
     Indication: ACUTE LEUKAEMIA
     Route: 041
     Dates: start: 20110314
  3. RANITIDINE [Concomitant]
     Dates: start: 20110302, end: 20110316

REACTIONS (3)
  - PYREXIA [None]
  - NEUTROPENIA [None]
  - ANAL FISSURE [None]
